FAERS Safety Report 13454990 (Version 1)
Quarter: 2017Q2

REPORT INFORMATION
  Report Type: Spontaneous
  Country: FR (occurrence: FR)
  Receive Date: 20170418
  Receipt Date: 20170418
  Transmission Date: 20170830
  Serious: Yes (Hospitalization)
  Sender: FDA-Public Use
  Company Number: FR-PFIZER INC-2017162425

PATIENT
  Age: 25 Year
  Sex: Female

DRUGS (2)
  1. ADEPAL [Suspect]
     Active Substance: ETHINYL ESTRADIOL\LEVONORGESTREL
     Indication: CONTRACEPTION
     Dosage: 1 DF, CYCLIC
     Route: 048
     Dates: start: 2008, end: 201702
  2. VENTOLINE /00139502/ [Concomitant]
     Dosage: UNK UNK, AS NEEDED
     Route: 055

REACTIONS (1)
  - Cholangiocarcinoma [Not Recovered/Not Resolved]

NARRATIVE: CASE EVENT DATE: 20170224
